FAERS Safety Report 12272569 (Version 3)
Quarter: 2016Q2

REPORT INFORMATION
  Report Type: Spontaneous
  Country: IT (occurrence: IT)
  Receive Date: 20160415
  Receipt Date: 20160525
  Transmission Date: 20160815
  Serious: Yes (Other)
  Sender: FDA-Public Use
  Company Number: IT-ASTRAZENECA-2016SE38462

PATIENT
  Sex: Female

DRUGS (2)
  1. CISPLATIN. [Concomitant]
     Active Substance: CISPLATIN
     Dates: start: 20130527, end: 20130910
  2. LYNPARZA [Suspect]
     Active Substance: OLAPARIB
     Indication: OVARIAN CANCER
     Route: 048
     Dates: start: 20150721, end: 20160203

REACTIONS (4)
  - Malignant neoplasm progression [Unknown]
  - Injury [Unknown]
  - Metastases to lung [Unknown]
  - Metastases to liver [Unknown]
